FAERS Safety Report 7193930-1 (Version None)
Quarter: 2010Q4

REPORT INFORMATION
  Report Type: 
  Country: None (occurrence: None)
  Receive Date: 20101124
  Receipt Date: 20100802
  Transmission Date: 20110411
  Serious: No
  Sender: FDA-Public Use
  Company Number: 016773

PATIENT
  Sex: Female
  Weight: 69.9 kg

DRUGS (7)
  1. LACOSAMIDE [Suspect]
     Indication: CONVULSION
     Dosage: (100 MG BID ORAL)
     Route: 048
     Dates: start: 20100419
  2. KEPPRA [Concomitant]
  3. TEGRETOL [Concomitant]
  4. DIAZEPAM [Concomitant]
  5. HYDROCHLOROTHIAZIDE [Concomitant]
  6. ZONEGRAN [Concomitant]
  7. PHENOBARBITAL [Concomitant]

REACTIONS (1)
  - GINGIVAL BLEEDING [None]
